FAERS Safety Report 9610686 (Version 2)
Quarter: 2013Q4

REPORT INFORMATION
  Report Type: Report from Study
  Country: JP (occurrence: JP)
  Receive Date: 20131009
  Receipt Date: 20131009
  Transmission Date: 20140711
  Serious: Yes (Hospitalization)
  Sender: FDA-Public Use
  Company Number: JP-TAKEDA-TCI2013A04317

PATIENT
  Age: 68 Year
  Sex: Male
  Weight: 42 kg

DRUGS (19)
  1. LANSOPRAZOLE [Suspect]
     Indication: PROPHYLAXIS AGAINST GASTROINTESTINAL ULCER
     Dosage: 15 MG, QD
     Route: 048
     Dates: start: 20130404, end: 20130720
  2. LANSOPRAZOLE [Suspect]
     Dosage: 15 MG, QD
     Route: 048
     Dates: start: 20130731
  3. LANSOPRAZOLE [Suspect]
     Dosage: 15 MG, QD
     Route: 048
     Dates: start: 20121114, end: 20130403
  4. BENET [Concomitant]
     Indication: OSTEOPOROSIS PROPHYLAXIS
     Route: 048
  5. BENET [Concomitant]
     Indication: OSTEOPOROSIS PROPHYLAXIS
     Route: 048
  6. AZULFIDINE EN [Concomitant]
     Indication: RHEUMATOID ARTHRITIS
     Route: 048
  7. AZULFIDINE EN [Concomitant]
     Route: 048
  8. CELECOX [Concomitant]
     Indication: RHEUMATOID ARTHRITIS
     Route: 048
  9. CELECOX [Concomitant]
     Route: 048
  10. PREDNISOLONE TABLETS 5MG [Concomitant]
     Indication: RHEUMATOID ARTHRITIS
     Route: 048
  11. PROGRAF [Concomitant]
     Indication: RHEUMATOID ARTHRITIS
     Route: 048
  12. PROGRAF [Concomitant]
     Route: 048
  13. PREMINENT [Concomitant]
     Indication: HYPERTENSION
     Route: 048
  14. PREMINENT [Concomitant]
     Route: 048
  15. ARTIST [Concomitant]
     Indication: HYPERTENSION
     Route: 048
  16. ARTIST [Concomitant]
     Route: 048
  17. LIPITOR [Concomitant]
     Indication: DYSLIPIDAEMIA
     Route: 048
  18. LIPITOR [Concomitant]
     Indication: DYSLIPIDAEMIA
     Route: 048
  19. PREDNISOLONE [Concomitant]
     Indication: RHEUMATOID ARTHRITIS
     Route: 048

REACTIONS (1)
  - Pneumothorax spontaneous [Recovered/Resolved]
